FAERS Safety Report 9559722 (Version 2)
Quarter: 2013Q3

REPORT INFORMATION
  Report Type: Spontaneous
  Country: US (occurrence: None)
  Receive Date: 20130924
  Receipt Date: 20130926
  Transmission Date: 20140515
  Serious: Yes (Hospitalization)
  Sender: FDA-Public Use
  Company Number: 2013AP008171

PATIENT
  Age: 86 Year
  Sex: Male

DRUGS (14)
  1. GALANTAMINE HYDROBROMIDE [Suspect]
     Indication: VASCULAR DEMENTIA
  2. DONEPEZIL [Concomitant]
  3. RISPERIDONE [Concomitant]
  4. CITALOPRAM [Concomitant]
  5. AMLODIPINE [Concomitant]
  6. LISINOPRIL [Concomitant]
  7. HYDROCHLOROTHIAZIDE [Concomitant]
  8. ASPIRIN [Concomitant]
  9. ROSUVASTATIN [Concomitant]
  10. GABAPENTIN [Concomitant]
  11. GOSERELIN [Concomitant]
  12. INSULIN GLARGINE [Concomitant]
  13. CYANOCOBALAMIN [Concomitant]
  14. MIRTAZAPINE [Concomitant]

REACTIONS (4)
  - Decreased appetite [None]
  - Abnormal loss of weight [None]
  - Fall [None]
  - Drug ineffective [None]
